FAERS Safety Report 5574841-1 (Version None)
Quarter: 2007Q4

REPORT INFORMATION
  Report Type: 
  Country: None (occurrence: None)
  Receive Date: 20071221
  Receipt Date: 20071221
  Transmission Date: 20080405
  Serious: Yes (Hospitalization)
  Sender: FDA-Public Use
  Company Number: None

PATIENT
  Age: 75 Year
  Sex: Female
  Weight: 54 kg

DRUGS (1)
  1. RAPAMYCIN 1 MG [Suspect]
     Indication: PANCREATIC CARCINOMA METASTATIC
     Dosage: 5 MG DAILY PO
     Route: 048
     Dates: start: 20071128, end: 20071218

REACTIONS (1)
  - PAIN [None]
